FAERS Safety Report 18322460 (Version 1)
Quarter: 2020Q3

REPORT INFORMATION
  Report Type: Spontaneous
  Country: GB (occurrence: GB)
  Receive Date: 20200929
  Receipt Date: 20200929
  Transmission Date: 20201103
  Serious: Yes (Hospitalization)
  Sender: FDA-Public Use
  Company Number: GB-TEVA-2020-GB-1831007

PATIENT
  Age: 71 Year
  Sex: Male
  Weight: 71 kg

DRUGS (3)
  1. CLARITHROMYCIN. [Suspect]
     Active Substance: CLARITHROMYCIN
     Indication: PNEUMONIA
     Dosage: 1000MG
     Route: 048
     Dates: start: 20190411, end: 20190416
  2. TACROLIMUS. [Interacting]
     Active Substance: TACROLIMUS
     Dosage: 3MG
  3. PREDNISOLONE. [Concomitant]
     Active Substance: PREDNISOLONE

REACTIONS (5)
  - Renal impairment [Unknown]
  - Contraindicated product prescribed [Unknown]
  - Labelled drug-drug interaction medication error [Recovered/Resolved]
  - Drug level increased [Recovered/Resolved]
  - Nephropathy toxic [Unknown]

NARRATIVE: CASE EVENT DATE: 20190418
